FAERS Safety Report 13072486 (Version 4)
Quarter: 2020Q3

REPORT INFORMATION
  Report Type: Report from Study
  Country: US (occurrence: US)
  Receive Date: 20161229
  Receipt Date: 20200716
  Transmission Date: 20201102
  Serious: No
  Sender: FDA-Public Use
  Company Number: PHHY2015US157823

PATIENT
  Age: 56 Year
  Sex: Male

DRUGS (2)
  1. GILENYA [Suspect]
     Active Substance: FINGOLIMOD HYDROCHLORIDE
     Indication: MULTIPLE SCLEROSIS
     Dosage: UNK, QD
     Route: 048
  2. SOLU?MEDROL [Concomitant]
     Active Substance: METHYLPREDNISOLONE SODIUM SUCCINATE
     Indication: MULTIPLE SCLEROSIS RELAPSE
     Dosage: UNK
     Route: 065
     Dates: start: 20160414, end: 20160417

REACTIONS (18)
  - Aspartate aminotransferase increased [Unknown]
  - Leukocytosis [Unknown]
  - Diarrhoea [Recovered/Resolved]
  - Goitre [Unknown]
  - Seborrhoeic dermatitis [Unknown]
  - Solar lentigo [Unknown]
  - Intertrigo [Unknown]
  - Stasis dermatitis [Unknown]
  - Melanocytic naevus [Unknown]
  - Cervical radiculopathy [Unknown]
  - Thyroid mass [Unknown]
  - Myopia [Unknown]
  - Depression [Unknown]
  - Gout [Recovered/Resolved]
  - Peripheral vascular disorder [Unknown]
  - Abnormal loss of weight [Recovered/Resolved]
  - Hyperglycaemia [Unknown]
  - Limb discomfort [Recovered/Resolved]

NARRATIVE: CASE EVENT DATE: 20151023
